FAERS Safety Report 9673011 (Version 1)
Quarter: 2013Q4

REPORT INFORMATION
  Report Type: Spontaneous
  Country: US (occurrence: US)
  Receive Date: 20131106
  Receipt Date: 20131106
  Transmission Date: 20140711
  Serious: No
  Sender: FDA-Public Use
  Company Number: US-AMGEN-USASP2013070668

PATIENT
  Sex: Female
  Weight: 62.59 kg

DRUGS (7)
  1. ENBREL [Suspect]
     Indication: PRODUCT USED FOR UNKNOWN INDICATION
     Dosage: UNK
     Route: 065
  2. XELJANZ [Suspect]
     Indication: PRODUCT USED FOR UNKNOWN INDICATION
     Dosage: 5 MG, BID
     Route: 048
  3. SIMVASTATIN [Concomitant]
     Dosage: 20 MG, UNK
  4. VITAMIN A                          /00056001/ [Concomitant]
     Dosage: 8000 IU, UNK
  5. VITAMIN D                          /00107901/ [Concomitant]
     Dosage: 50000 IU, UNK
  6. VITAMIN C                          /00008001/ [Concomitant]
     Dosage: 500 MG, UNK
  7. OMEGA 3                            /01333901/ [Concomitant]
     Dosage: 340 MG, UNK

REACTIONS (1)
  - Drug hypersensitivity [Unknown]
